FAERS Safety Report 8944502 (Version 4)
Quarter: 2014Q2

REPORT INFORMATION
  Report Type: Spontaneous
  Country: US (occurrence: US)
  Receive Date: 20121204
  Receipt Date: 20140625
  Transmission Date: 20141212
  Serious: Yes (Other)
  Sender: FDA-Public Use
  Company Number: US-AMGEN-USASP2012064928

PATIENT
  Age: 34 Year
  Sex: Female
  Weight: 81.63 kg

DRUGS (5)
  1. ENBREL [Suspect]
     Indication: ANKYLOSING SPONDYLITIS
     Dosage: 50 MG, QWK
     Route: 065
     Dates: start: 201109
  2. VITAMINS                           /90003601/ [Concomitant]
     Dosage: 1 DF
     Route: 048
     Dates: start: 20110907
  3. FISH OIL [Concomitant]
     Dosage: 1000 MG, QD
     Route: 048
     Dates: start: 201101
  4. ACYCLOVIR                          /00587301/ [Concomitant]
     Indication: HERPES VIRUS INFECTION
     Dosage: 400 MG, QD
     Route: 048
     Dates: start: 201109
  5. DTAP [Concomitant]
     Dosage: UNK

REACTIONS (2)
  - Ankylosing spondylitis [Not Recovered/Not Resolved]
  - Appendicectomy [Unknown]
